FAERS Safety Report 24025631 (Version 1)
Quarter: 2024Q2

REPORT INFORMATION
  Report Type: Report from Study
  Country: IN (occurrence: IN)
  Receive Date: 20240628
  Receipt Date: 20240628
  Transmission Date: 20240716
  Serious: No
  Sender: FDA-Public Use
  Company Number: IN-ROCHE-3399005

PATIENT
  Age: 47 Year
  Sex: Female

DRUGS (1)
  1. PHESGO [Suspect]
     Active Substance: HYALURONIDASE-ZZXF\PERTUZUMAB\TRASTUZUMAB
     Indication: Breast cancer metastatic
     Route: 058
     Dates: start: 20230630

REACTIONS (6)
  - Decreased appetite [Unknown]
  - Abdominal discomfort [Unknown]
  - Diarrhoea [Unknown]
  - Pyrexia [Unknown]
  - Asthenia [Unknown]
  - Nausea [Unknown]
